FAERS Safety Report 5066668-4 (Version None)
Quarter: 2006Q3

REPORT INFORMATION
  Report Type: 
  Country: None (occurrence: None)
  Receive Date: 20060728
  Receipt Date: 20060717
  Transmission Date: 20061208
  Serious: Yes (Hospitalization)
  Sender: FDA-Public Use
  Company Number: B0431827A

PATIENT
  Age: 31 Year
  Sex: Female

DRUGS (4)
  1. PAXIL [Suspect]
  2. DULOXETINE (DULOXETINE) [Suspect]
  3. BUPROPION HCL [Concomitant]
  4. CLONAZEPAM [Concomitant]

REACTIONS (2)
  - SEROTONIN SYNDROME [None]
  - SOMNOLENCE [None]
